FAERS Safety Report 7811569-9 (Version None)
Quarter: 2011Q4

REPORT INFORMATION
  Report Type: 
  Country: None (occurrence: None)
  Receive Date: 20111013
  Receipt Date: 20111006
  Transmission Date: 20120403
  Serious: Yes (Other)
  Sender: FDA-Public Use
  Company Number: BR-PFIZER INC-2009208200

PATIENT
  Age: 36 Year
  Sex: Female
  Weight: 87 kg

DRUGS (2)
  1. DEPO-PROVERA [Suspect]
     Indication: CONTRACEPTION
     Dosage: 150 MG, EVERY 3 MONTHS
     Route: 030
     Dates: start: 20080101, end: 20100601
  2. DEPO-PROVERA [Suspect]
     Indication: UTERINE LEIOMYOMA

REACTIONS (10)
  - METRORRHAGIA [None]
  - WEIGHT INCREASED [None]
  - AMENORRHOEA [None]
  - MENORRHAGIA [None]
  - UTERINE LEIOMYOMA [None]
  - HEADACHE [None]
  - CONDITION AGGRAVATED [None]
  - UTERINE ENLARGEMENT [None]
  - DYSMENORRHOEA [None]
  - INFERTILITY FEMALE [None]
